FAERS Safety Report 20290237 (Version 1)
Quarter: 2022Q1

REPORT INFORMATION
  Report Type: Spontaneous
  Country: US (occurrence: None)
  Receive Date: 20220103
  Receipt Date: 20220103
  Transmission Date: 20220423
  Serious: Yes (Death)
  Sender: FDA-Public Use
  Company Number: None

PATIENT
  Age: 61 Year
  Sex: Male
  Weight: 59.4 kg

DRUGS (16)
  1. DEXAMETHASONE [Suspect]
     Active Substance: DEXAMETHASONE
     Indication: Plasma cell myeloma
     Dosage: FREQUENCY : WEEKLY;?
     Route: 048
     Dates: start: 20210416, end: 20211228
  2. REVLIMID [Concomitant]
     Active Substance: LENALIDOMIDE
  3. VITAMIN D3 [Concomitant]
     Active Substance: CHOLECALCIFEROL
  4. ALDACTONE [Concomitant]
     Active Substance: SPIRONOLACTONE
  5. REMERON [Concomitant]
     Active Substance: MIRTAZAPINE
  6. ZOFRAN [Concomitant]
     Active Substance: ONDANSETRON HYDROCHLORIDE
  7. LEXAPRO [Concomitant]
     Active Substance: ESCITALOPRAM OXALATE
  8. POTASSIUM CITRATE [Concomitant]
     Active Substance: POTASSIUM CITRATE
  9. SENNA [Concomitant]
     Active Substance: SENNA LEAF\SENNOSIDES\SENNOSIDES A AND B
  10. TYLENOL [Concomitant]
     Active Substance: ACETAMINOPHEN
  11. FERROUS FUMARATE [Concomitant]
     Active Substance: FERROUS FUMARATE
  12. TRAMADOL [Concomitant]
     Active Substance: TRAMADOL
  13. ASPIRIN [Concomitant]
     Active Substance: ASPIRIN
  14. ATORVASTATIN [Concomitant]
     Active Substance: ATORVASTATIN
  15. FLEET (BISACODYL) [Concomitant]
     Active Substance: BISACODYL
  16. MILK OF MAGNESIA [Concomitant]
     Active Substance: MAGNESIUM HYDROXIDE

REACTIONS (1)
  - Death [None]

NARRATIVE: CASE EVENT DATE: 20211228
